FAERS Safety Report 18986654 (Version 2)
Quarter: 2021Q1

REPORT INFORMATION
  Report Type: Report from Study
  Country: ZA (occurrence: ZA)
  Receive Date: 20210309
  Receipt Date: 20210323
  Transmission Date: 20210420
  Serious: Yes (Other)
  Sender: FDA-Public Use
  Company Number: ZA-NOVOPROD-792115

PATIENT
  Age: 50 Year
  Sex: Female

DRUGS (1)
  1. NOVOMIX 30 FLEXPEN [Suspect]
     Active Substance: INSULIN ASPART
     Indication: TYPE 2 DIABETES MELLITUS
     Dosage: 26 IU, QD (BREAKFAST DOSE: 16 IU, SUPPER DOSE: 10 IU)
     Route: 065
     Dates: start: 20201201, end: 20210310

REACTIONS (4)
  - Oedema [Recovered/Resolved]
  - Oedema [Recovered/Resolved]
  - Swollen tongue [Recovered/Resolved]
  - Hypoglycaemia [Recovered/Resolved]

NARRATIVE: CASE EVENT DATE: 20210222
